FAERS Safety Report 19175525 (Version 5)
Quarter: 2025Q2

REPORT INFORMATION
  Report Type: Spontaneous
  Country: US (occurrence: US)
  Receive Date: 20210423
  Receipt Date: 20250430
  Transmission Date: 20250716
  Serious: Yes (Other)
  Sender: PFIZER
  Company Number: US-PFIZER INC-2021172093

PATIENT
  Age: 69 Year
  Sex: Female
  Weight: 69.3 kg

DRUGS (1)
  1. FILGRASTIM [Suspect]
     Active Substance: FILGRASTIM
     Indication: Neutropenia

REACTIONS (2)
  - Apallic syndrome [Unknown]
  - Drug ineffective [Unknown]
